FAERS Safety Report 4343351-1 (Version None)
Quarter: 2004Q1

REPORT INFORMATION
  Report Type: 
  Country: None (occurrence: None)
  Receive Date: 20040325
  Receipt Date: 20040121
  Transmission Date: 20041129
  Serious: No
  Sender: FDA-Public Use
  Company Number: USA040157247

PATIENT
  Age: 82 Year
  Sex: Female

DRUGS (2)
  1. FORTEO [Suspect]
     Indication: OSTEOPOROSIS
     Dates: start: 20040112
  2. MULTIVITAMIN [Concomitant]

REACTIONS (5)
  - ASTHENIA [None]
  - BACK PAIN [None]
  - NAUSEA [None]
  - ORAL PAIN [None]
  - STOMATITIS [None]
